FAERS Safety Report 9689720 (Version 1)
Quarter: 2013Q4

REPORT INFORMATION
  Report Type: Spontaneous
  Country: GB (occurrence: GB)
  Receive Date: 20131115
  Receipt Date: 20131115
  Transmission Date: 20140711
  Serious: No
  Sender: FDA-Public Use
  Company Number: GB-JNJFOC-20131103712

PATIENT
  Sex: Female

DRUGS (3)
  1. DUROGESIC DTRANS [Suspect]
     Indication: BACK PAIN
     Route: 062
  2. DUROGESIC DTRANS [Suspect]
     Indication: BACK PAIN
     Route: 062
  3. DUROGESIC DTRANS [Suspect]
     Indication: BACK PAIN
     Route: 062

REACTIONS (2)
  - Inappropriate schedule of drug administration [Unknown]
  - Accidental overdose [Unknown]
